FAERS Safety Report 7297672-3 (Version None)
Quarter: 2011Q1

REPORT INFORMATION
  Report Type: 
  Country: None (occurrence: None)
  Receive Date: 20110216
  Receipt Date: 20110209
  Transmission Date: 20110831
  Serious: Yes (Other)
  Sender: FDA-Public Use
  Company Number: US-GILEAD-2011-0036346

PATIENT
  Sex: Female

DRUGS (1)
  1. LETAIRIS [Suspect]
     Indication: PRODUCT USED FOR UNKNOWN INDICATION
     Route: 048
     Dates: start: 20100824

REACTIONS (5)
  - BLOOD POTASSIUM DECREASED [None]
  - COUGH [None]
  - TOOTH DISORDER [None]
  - SYSTEMIC LUPUS ERYTHEMATOSUS [None]
  - GINGIVAL RECESSION [None]
